FAERS Safety Report 19072344 (Version 1)
Quarter: 2021Q1

REPORT INFORMATION
  Report Type: Spontaneous
  Country: US (occurrence: US)
  Receive Date: 20210329
  Receipt Date: 20210329
  Transmission Date: 20210420
  Serious: No
  Sender: FDA-Public Use
  Company Number: None

PATIENT
  Age: 42 Year
  Sex: Male
  Weight: 100.8 kg

DRUGS (2)
  1. ATORVASTATIN [Suspect]
     Active Substance: ATORVASTATIN
     Indication: BLOOD CHOLESTEROL INCREASED
     Dosage: ?          QUANTITY:1 TABLET(S);?
     Route: 048
     Dates: start: 20210225, end: 20210328
  2. MAGNESIUM [Concomitant]
     Active Substance: MAGNESIUM

REACTIONS (9)
  - Deafness [None]
  - Visual impairment [None]
  - Dizziness [None]
  - Headache [None]
  - Tinnitus [None]
  - Arthralgia [None]
  - Pain in extremity [None]
  - Distractibility [None]
  - Memory impairment [None]

NARRATIVE: CASE EVENT DATE: 20210228
